FAERS Safety Report 25215295 (Version 2)
Quarter: 2025Q2

REPORT INFORMATION
  Report Type: Spontaneous
  Country: US (occurrence: US)
  Receive Date: 20250418
  Receipt Date: 20250519
  Transmission Date: 20250717
  Serious: No
  Sender: JOHNSON AND JOHNSON
  Company Number: US-JNJFOC-20250408097

PATIENT
  Age: 46 Year
  Sex: Male

DRUGS (2)
  1. TREMFYA [Suspect]
     Active Substance: GUSELKUMAB
     Indication: Psoriatic arthropathy
     Dates: start: 202408
  2. TREMFYA [Suspect]
     Active Substance: GUSELKUMAB
     Indication: Psoriasis

REACTIONS (5)
  - Product leakage [Unknown]
  - Product dose omission issue [Unknown]
  - Product label issue [Unknown]
  - Injection site rash [Unknown]
  - Injection site erythema [Unknown]
